FAERS Safety Report 7818908-3 (Version None)
Quarter: 2011Q4

REPORT INFORMATION
  Report Type: 
  Country: None (occurrence: None)
  Receive Date: 20111018
  Receipt Date: 20111007
  Transmission Date: 20120403
  Serious: Yes (Other)
  Sender: FDA-Public Use
  Company Number: DE-AMGEN-DEUSP2011052435

PATIENT
  Age: 70 Year
  Sex: Female

DRUGS (4)
  1. ANTIBIOTICS [Concomitant]
     Indication: NASOPHARYNGITIS
     Dosage: UNK
  2. METHOTREXATE SODIUM [Concomitant]
     Indication: RHEUMATOID ARTHRITIS
     Dosage: UNK
  3. ENBREL [Suspect]
     Indication: RHEUMATOID ARTHRITIS
     Dosage: 25 MG, 2X/WEEK
     Dates: start: 19990101
  4. CORTISONE ACETATE [Concomitant]
     Indication: RHEUMATOID ARTHRITIS
     Dosage: UNK

REACTIONS (7)
  - NASOPHARYNGITIS [None]
  - FEELING ABNORMAL [None]
  - DRUG INEFFECTIVE [None]
  - SURGERY [None]
  - DELUSION [None]
  - RHEUMATOID ARTHRITIS [None]
  - NAUSEA [None]
